FAERS Safety Report 4264996-3 (Version None)
Quarter: 2004Q1

REPORT INFORMATION
  Report Type: 
  Country: None (occurrence: None)
  Receive Date: 20040106
  Receipt Date: 20031215
  Transmission Date: 20041129
  Serious: Yes (Other)
  Sender: FDA-Public Use
  Company Number: WAES 0312USA02462

PATIENT
  Age: 60 Year
  Sex: Female

DRUGS (3)
  1. HERBESSER [Concomitant]
     Route: 048
  2. PEPCID RPD [Suspect]
     Route: 048
  3. ROCORNAL [Concomitant]
     Route: 048

REACTIONS (2)
  - IDIOPATHIC THROMBOCYTOPENIC PURPURA [None]
  - NEPHROGENIC ANAEMIA [None]
